FAERS Safety Report 20601411 (Version 1)
Quarter: 2022Q1

REPORT INFORMATION
  Report Type: Spontaneous
  Country: US (occurrence: US)
  Receive Date: 20220316
  Receipt Date: 20220316
  Transmission Date: 20220423
  Serious: No
  Sender: FDA-Public Use
  Company Number: US-JNJFOC-20220322515

PATIENT
  Age: 91 Year
  Sex: Female

DRUGS (1)
  1. WOMENS ROGAINE [Suspect]
     Active Substance: MINOXIDIL
     Indication: Alopecia
     Dosage: AS RECOMMENDED AS RECOMMENDED
     Route: 065
     Dates: start: 20220221

REACTIONS (1)
  - Hair colour changes [Unknown]

NARRATIVE: CASE EVENT DATE: 20220221
